FAERS Safety Report 6907295-0 (Version None)
Quarter: 2010Q3

REPORT INFORMATION
  Report Type: 
  Country: None (occurrence: None)
  Receive Date: 20100730
  Receipt Date: 20100721
  Transmission Date: 20110219
  Serious: Yes (Death, Hospitalization, Other)
  Sender: FDA-Public Use
  Company Number: 2009AC000251

PATIENT
  Age: 75 Year
  Sex: Female

DRUGS (58)
  1. DIGOXIN [Suspect]
     Indication: ARRHYTHMIA
     Dosage: 0.125 MG; QD; PO, 0.0625 MG; 2X/WEEK; PO
     Route: 048
     Dates: start: 20080601, end: 20080101
  2. DIGOXIN [Suspect]
     Indication: ARRHYTHMIA
     Dosage: 0.125 MG; QD; PO, 0.0625 MG; 2X/WEEK; PO
     Route: 048
     Dates: start: 20060501, end: 20080909
  3. DIGOXIN [Suspect]
     Dosage: 0.125 MG; PO
     Route: 048
     Dates: start: 20021101, end: 20050801
  4. DIGOXIN [Suspect]
     Dosage: 0.125 MG; 3X/WEEK; PO
     Route: 048
     Dates: start: 20050801, end: 20080306
  5. DIGOXIN [Suspect]
     Dosage: QOD; PO
     Route: 048
     Dates: start: 20080301, end: 20080601
  6. LEVOTHYROXINE SODIUM [Concomitant]
  7. LOVASTATIN [Concomitant]
  8. AMIODARONE HCL [Concomitant]
  9. PROMETHAZINE [Concomitant]
  10. ZOLPIDEM [Concomitant]
  11. MEXILETINE [Concomitant]
  12. ZETIA [Concomitant]
  13. PHOSLO [Concomitant]
  14. ALLOPURINOL [Concomitant]
  15. METOPROLOL TARTRATE [Concomitant]
  16. GENTAMICIN [Concomitant]
  17. AMBIEN [Concomitant]
  18. MECLIZINE [Concomitant]
  19. RENAL SOFT GEL [Concomitant]
  20. NITROGLYCERIN [Concomitant]
  21. RENAGEL [Concomitant]
  22. MIDODRINE HYDROCHLORIDE [Concomitant]
  23. CHERATUSSIN [Concomitant]
  24. MAGOXIDE [Concomitant]
  25. SENSIPAR [Concomitant]
  26. ISOSORBIDE [Concomitant]
  27. TOPROL-XL [Concomitant]
  28. POTASSIUM [Concomitant]
  29. METOLAZONE [Concomitant]
  30. TORESEMIDE [Concomitant]
  31. PLAVIX [Concomitant]
  32. FLOGARD [Concomitant]
  33. CLOPIDOGREL [Concomitant]
  34. DIOVAN [Concomitant]
  35. HYDRALAZINE HCL [Concomitant]
  36. FLOPLEX [Concomitant]
  37. GALATRO [Concomitant]
  38. ASPIRIN [Concomitant]
  39. COMPAZINE [Concomitant]
  40. ATROPINE [Concomitant]
  41. EPOGEN [Concomitant]
  42. LORAZEPAM [Concomitant]
  43. PRILOSEC [Concomitant]
  44. NITROGLYCERIN [Concomitant]
  45. MULTIVITAMINES [Concomitant]
  46. OXYGEN [Concomitant]
  47. ROXANOL [Concomitant]
  48. ACETAMINOPHEN [Concomitant]
  49. SYNTHROID [Concomitant]
  50. STRESS FORMULA TABLETS [Concomitant]
  51. NORVASC [Concomitant]
  52. COREG [Concomitant]
  53. TEMAZEPAM [Concomitant]
  54. COLCHICINES [Concomitant]
  55. ALLOPURINOL [Concomitant]
  56. SPIRIVA [Concomitant]
  57. DOBUTAMINE HCL [Concomitant]
  58. HEPARIN [Concomitant]

REACTIONS (17)
  - ANAEMIA [None]
  - CARDIAC FAILURE [None]
  - DECREASED APPETITE [None]
  - DIZZINESS [None]
  - FATIGUE [None]
  - HAEMODIALYSIS [None]
  - HYPOTENSION [None]
  - MALAISE [None]
  - MITRAL VALVE INCOMPETENCE [None]
  - MULTIPLE INJURIES [None]
  - MYOCARDIAL ISCHAEMIA [None]
  - NAUSEA [None]
  - RENAL FAILURE [None]
  - THERAPEUTIC AGENT TOXICITY [None]
  - TREMOR [None]
  - TRICUSPID VALVE INCOMPETENCE [None]
  - VOMITING [None]
